FAERS Safety Report 6121405-7 (Version None)
Quarter: 2009Q1

REPORT INFORMATION
  Report Type: 
  Country: None (occurrence: None)
  Receive Date: 20090317
  Receipt Date: 20090306
  Transmission Date: 20090719
  Serious: Yes (Other)
  Sender: FDA-Public Use
  Company Number: US-JNJFOC-20090302306

PATIENT
  Age: 43 Year
  Sex: Female
  Weight: 52.16 kg

DRUGS (4)
  1. EXTRA STRENGTH TYLENOL [Suspect]
     Dosage: 2 CAPLETS AT 10 PM AND 2 MORE AT 2AM
     Route: 048
  2. EXTRA STRENGTH TYLENOL [Suspect]
     Indication: INSOMNIA
     Route: 048
  3. AFRIN [Concomitant]
     Indication: SEASONAL ALLERGY
  4. AMBIEN [Concomitant]
     Indication: INSOMNIA
     Dosage: UNSPECIFIED DOSE USED FOR 2 NIGHTS

REACTIONS (9)
  - COORDINATION ABNORMAL [None]
  - DEPRESSION [None]
  - DISORIENTATION [None]
  - DRUG INEFFECTIVE [None]
  - DYSPNOEA [None]
  - FEELING ABNORMAL [None]
  - HYPOAESTHESIA [None]
  - INAPPROPRIATE SCHEDULE OF DRUG ADMINISTRATION [None]
  - VISUAL IMPAIRMENT [None]
